FAERS Safety Report 24146603 (Version 1)
Quarter: 2024Q3

REPORT INFORMATION
  Report Type: Spontaneous
  Country: US (occurrence: None)
  Receive Date: 20240726
  Receipt Date: 20240726
  Transmission Date: 20241017
  Serious: No
  Sender: Public
  Company Number: None

PATIENT
  Age: 59 Year
  Sex: Female
  Weight: 64.41 kg

DRUGS (1)
  1. SIMPONI [Suspect]
     Active Substance: GOLIMUMAB
     Indication: Rheumatoid arthritis
     Dosage: INJECT 100MG (1 PEN) SUBCUTANEOUSLY EVERY 4 WEEKS AS DIRECTED.   ?
     Route: 058
     Dates: start: 202109

REACTIONS (1)
  - Urinary tract infection [None]
